FAERS Safety Report 4648056-5 (Version None)
Quarter: 2005Q2

REPORT INFORMATION
  Report Type: 
  Country: None (occurrence: None)
  Receive Date: 20050331
  Receipt Date: 20041216
  Transmission Date: 20051028
  Serious: No
  Sender: FDA-Public Use
  Company Number: 04P-163-0283972-00

PATIENT
  Age: 74 Year
  Sex: Male
  Weight: 95.2554 kg

DRUGS (16)
  1. HUMIRA [Suspect]
     Indication: RHEUMATOID ARTHRITIS
     Dosage: 40 MG, 1 IN 2 WK, SUBCUTANEOUS
     Route: 058
     Dates: start: 20030801, end: 20040801
  2. DIGOXIN [Concomitant]
  3. POTASSIUM CHLORIDE [Concomitant]
  4. FOLIC ACID [Concomitant]
  5. HYDROCHLOROTHIAZIDE [Concomitant]
  6. SINGULAIR [Concomitant]
  7. DISOPYRAMIDE PHOSPHATE [Concomitant]
  8. COUMADIN [Concomitant]
  9. TIATAZ [Concomitant]
  10. ENALAPRIL MALEATE [Concomitant]
  11. METHOTREXATE [Concomitant]
  12. MOMETASONE FUROATE [Concomitant]
  13. EARACEPT [Concomitant]
  14. IBUPROFEN [Concomitant]
  15. NAMENDA [Concomitant]
  16. ALBUTEROL SULFATE HFA [Concomitant]

REACTIONS (6)
  - DIZZINESS [None]
  - HALLUCINATION, VISUAL [None]
  - MOOD ALTERED [None]
  - NERVOUSNESS [None]
  - TREMOR [None]
  - VISION BLURRED [None]
